FAERS Safety Report 7956238-X (Version None)
Quarter: 2011Q4

REPORT INFORMATION
  Report Type: 
  Country: None (occurrence: None)
  Receive Date: 20111205
  Receipt Date: 20111123
  Transmission Date: 20120403
  Serious: Yes (Other)
  Sender: FDA-Public Use
  Company Number: US-JNJFOC-20111111393

PATIENT
  Sex: Female
  Weight: 58.97 kg

DRUGS (5)
  1. REMICADE [Suspect]
     Indication: RHEUMATOID ARTHRITIS
     Route: 042
     Dates: start: 20110222, end: 20110411
  2. ORENCIA [Suspect]
     Indication: RHEUMATOID ARTHRITIS
     Dates: start: 20110101
  3. METHOTREXATE [Concomitant]
     Indication: RHEUMATOID ARTHRITIS
  4. BENADRYL [Concomitant]
     Indication: PREMEDICATION
  5. PREDNISONE TAB [Concomitant]
     Indication: PREMEDICATION

REACTIONS (10)
  - INFUSION RELATED REACTION [None]
  - PAIN [None]
  - EATING DISORDER [None]
  - DRY SKIN [None]
  - CONDITION AGGRAVATED [None]
  - SKIN EXFOLIATION [None]
  - ULCER [None]
  - PHOTOPHOBIA [None]
  - ERYTHEMA [None]
  - PRURITUS [None]
